FAERS Safety Report 4307321-1 (Version None)
Quarter: 2004Q1

REPORT INFORMATION
  Report Type: 
  Country: None (occurrence: None)
  Receive Date: 20040226
  Receipt Date: 20030603
  Transmission Date: 20041129
  Serious: No
  Sender: FDA-Public Use
  Company Number: 200300513

PATIENT
  Age: 13 Month

DRUGS (1)
  1. CHILDREN'S MOTRIN [Suspect]

REACTIONS (1)
  - DYSPEPSIA [None]
